FAERS Safety Report 6332849-2 (Version None)
Quarter: 2009Q3

REPORT INFORMATION
  Report Type: 
  Country: None (occurrence: None)
  Receive Date: 20090828
  Receipt Date: 20090820
  Transmission Date: 20100115
  Serious: Yes (Hospitalization, Other)
  Sender: FDA-Public Use
  Company Number: US-ELI_LILLY_AND_COMPANY-US200801005570

PATIENT
  Sex: Male

DRUGS (8)
  1. BYETTA [Suspect]
     Indication: TYPE 2 DIABETES MELLITUS
     Dosage: 5 UG, 2/D
     Route: 058
     Dates: start: 20080110
  2. BYETTA [Suspect]
     Dosage: 10 UG, UNK
  3. BYETTA [Suspect]
     Dosage: 5 UG, 2/D
  4. GLYBURIDE [Concomitant]
     Indication: DIABETES MELLITUS
     Dosage: 10 MG, UNK
     Route: 048
     Dates: start: 19930101, end: 20080123
  5. GLYBURIDE [Concomitant]
     Dosage: 5 MG, 2/D
     Dates: start: 20080124, end: 20080101
  6. GLYBURIDE [Concomitant]
     Dosage: 5 MG, DAILY (1/D)
     Dates: start: 20080101
  7. GLYBURIDE [Concomitant]
     Dosage: 3 MG, 2/D
  8. LISINOPRIL [Concomitant]
     Indication: BLOOD PRESSURE

REACTIONS (10)
  - BACK PAIN [None]
  - BLOOD GLUCOSE DECREASED [None]
  - BLOOD GLUCOSE INCREASED [None]
  - GLYCOSYLATED HAEMOGLOBIN INCREASED [None]
  - HOSPITALISATION [None]
  - IRRITABILITY [None]
  - PROSTATE CANCER [None]
  - URINARY TRACT INFECTION [None]
  - URINE ABNORMALITY [None]
  - VOMITING [None]
